FAERS Safety Report 4417784-9 (Version None)
Quarter: 2004Q2

REPORT INFORMATION
  Report Type: 
  Country: None (occurrence: None)
  Receive Date: 20040621
  Receipt Date: 20040414
  Transmission Date: 20050107
  Serious: No
  Sender: FDA-Public Use
  Company Number: PHEH2004US04270

PATIENT
  Age: 82 Year
  Sex: Male

DRUGS (9)
  1. ZOMETA [Suspect]
     Indication: PROSTATE CANCER
     Dosage: 4 MG, QMO, INTRAVENOUS
     Route: 042
     Dates: start: 20031201
  2. FUROSEMIDE [Concomitant]
  3. LISINOPRIL (LISINOPRL) [Concomitant]
  4. COREG [Concomitant]
  5. PROSCAR [Concomitant]
  6. K-DUR 10 [Concomitant]
  7. MAGNESIUM OXIDE [Concomitant]
  8. CASODEX [Concomitant]
  9. ELIGARD [Concomitant]

REACTIONS (3)
  - BALANCE DISORDER [None]
  - BLOOD POTASSIUM INCREASED [None]
  - HYPERTENSION [None]
